FAERS Safety Report 5047062-9 (Version None)
Quarter: 2006Q3

REPORT INFORMATION
  Report Type: 
  Country: None (occurrence: None)
  Receive Date: 20060710
  Receipt Date: 20051110
  Transmission Date: 20061208
  Serious: Yes (Death, Life-Threatening, Other)
  Sender: FDA-Public Use
  Company Number: US-ABBOTT-05P-163-0317612-00

PATIENT
  Age: 5 Year
  Sex: Male
  Weight: 19 kg

DRUGS (10)
  1. SEVOFLURANE [Suspect]
     Indication: ANAESTHESIA
     Route: 055
  2. ISOFLURANE [Suspect]
     Indication: MAINTENANCE OF ANAESTHESIA
     Route: 055
  3. NITROUS OXIDE W/ OXYGEN [Concomitant]
     Indication: ANAESTHESIA
     Route: 055
  4. VECURONIUM BROMIDE [Concomitant]
     Indication: MAINTENANCE OF ANAESTHESIA
     Dosage: NOT REPORTED
  5. OXYGEN [Concomitant]
     Indication: ANAESTHESIA
     Dosage: NOT REPORTED
     Route: 055
  6. OXYGEN [Concomitant]
     Dosage: NOT REPORTED
     Route: 055
  7. MIVACURIUM [Concomitant]
     Indication: HYPOTONIA
     Dosage: NOT REPORTED
  8. FENTANYL TRANSDERMAL SYSTEM [Concomitant]
     Indication: MAINTENANCE OF ANAESTHESIA
     Dosage: NOT REPORTED
  9. NEOSTIGMINE [Concomitant]
     Indication: NEUROMUSCULAR BLOCKADE REVERSAL
     Dosage: NOT REPORTED
  10. GLYCOPYRRONIUM BROMIDE [Concomitant]
     Indication: NEUROMUSCULAR BLOCKADE REVERSAL
     Dosage: NOT REPORTED

REACTIONS (3)
  - BRAIN DEATH [None]
  - CARDIAC ARREST [None]
  - RHABDOMYOLYSIS [None]
